FAERS Safety Report 5191244-2 (Version None)
Quarter: 2006Q4

REPORT INFORMATION
  Report Type: 
  Country: None (occurrence: None)
  Receive Date: 20061218
  Receipt Date: 20061205
  Transmission Date: 20070319
  Serious: Yes (Hospitalization, Disabling)
  Sender: FDA-Public Use
  Company Number: FRWYE859505SEP06

PATIENT
  Age: 34 Year
  Sex: Female

DRUGS (3)
  1. EFFEXOR [Suspect]
     Indication: DEPRESSION
     Dosage: 25 TO 50 MG TOTAL DAILY ORAL
     Route: 048
     Dates: start: 20060804, end: 20060825
  2. POLARAMINE [Suspect]
     Indication: HYPERSENSITIVITY
     Dosage: 6 MG ORAL
     Route: 048
     Dates: end: 20060101
  3. LORAZEPAM [Concomitant]

REACTIONS (8)
  - HEADACHE [None]
  - HEREDITARY OPTIC ATROPHY [None]
  - HOLMES-ADIE PUPIL [None]
  - INCORRECT DOSE ADMINISTERED [None]
  - MIGRAINE [None]
  - OPTIC NEURITIS [None]
  - TEMPORAL ARTERITIS [None]
  - VITAMIN B COMPLEX DEFICIENCY [None]
